FAERS Safety Report 5159312-9 (Version None)
Quarter: 2006Q4

REPORT INFORMATION
  Report Type: 
  Country: None (occurrence: None)
  Receive Date: 20061114
  Receipt Date: 20061101
  Transmission Date: 20070319
  Serious: Yes (Life-Threatening, Hospitalization, Other)
  Sender: FDA-Public Use
  Company Number: 200310186BBE

PATIENT
  Age: 61 Year
  Sex: Male
  Weight: 100.6985 kg

DRUGS (15)
  1. GAMIMUNE N 10% [Suspect]
     Indication: GAMMOPATHY
     Dosage: SEE IMAGE
     Route: 042
     Dates: start: 20030829
  2. GAMIMUNE N 10% [Suspect]
     Indication: NEUROPATHY PERIPHERAL
     Dosage: SEE IMAGE
     Route: 042
     Dates: start: 20030829
  3. GAMIMUNE N 10% [Suspect]
     Indication: GAMMOPATHY
     Dosage: SEE IMAGE
     Route: 042
     Dates: start: 20030829
  4. GAMIMUNE N 10% [Suspect]
     Indication: NEUROPATHY PERIPHERAL
     Dosage: SEE IMAGE
     Route: 042
     Dates: start: 20030829
  5. GAMIMUNE N 10% [Suspect]
     Indication: GAMMOPATHY
     Dosage: SEE IMAGE
     Route: 042
     Dates: start: 20030829
  6. GAMIMUNE N 10% [Suspect]
     Indication: NEUROPATHY PERIPHERAL
     Dosage: SEE IMAGE
     Route: 042
     Dates: start: 20030829
  7. GAMIMUNE N 10% [Suspect]
  8. GAMIMUNE N 10% [Suspect]
  9. TYLENOL [Concomitant]
  10. BENADRYL [Concomitant]
  11. MINIPRESS [Concomitant]
  12. TORADOL [Concomitant]
  13. VICOPROFEN [Concomitant]
  14. ASPIRIN [Concomitant]
  15. PREDNISONE TAB [Concomitant]

REACTIONS (11)
  - ADJUSTMENT DISORDER [None]
  - AMNESIA [None]
  - ANAPHYLACTIC REACTION [None]
  - COGNITIVE DISORDER [None]
  - CONDITION AGGRAVATED [None]
  - DIPLOPIA [None]
  - INCORRECT DRUG ADMINISTRATION RATE [None]
  - NEUROPATHY PERIPHERAL [None]
  - PHARMACEUTICAL PRODUCT COMPLAINT [None]
  - POOR QUALITY DRUG ADMINISTERED [None]
  - VISION BLURRED [None]
